FAERS Safety Report 5800038-3 (Version None)
Quarter: 2008Q2

REPORT INFORMATION
  Report Type: 
  Country: None (occurrence: None)
  Receive Date: 20080626
  Receipt Date: 20070430
  Transmission Date: 20081010
  Serious: Yes (Hospitalization)
  Sender: FDA-Public Use
  Company Number: 495424

PATIENT
  Sex: Female
  Weight: 58.1 kg

DRUGS (2)
  1. XELODA [Suspect]
     Indication: BREAST CANCER
     Dosage: 2500 MG DAILY 2 PER DAY
  2. LAPATINIB (LAPATINIB) [Concomitant]

REACTIONS (1)
  - STOMATITIS [None]
